FAERS Safety Report 6979373-1 (Version None)
Quarter: 2010Q3

REPORT INFORMATION
  Report Type: 
  Country: None (occurrence: None)
  Receive Date: 20100913
  Receipt Date: 20100831
  Transmission Date: 20110219
  Serious: Yes (Other)
  Sender: FDA-Public Use
  Company Number: US-TYCO HEALTHCARE/MALLINCKRODT-T201001896

PATIENT
  Age: 80 Year
  Sex: Female

DRUGS (1)
  1. RESTORIL [Suspect]
     Dosage: UNK

REACTIONS (2)
  - AGITATION [None]
  - SUICIDAL IDEATION [None]
